FAERS Safety Report 6522614-5 (Version None)
Quarter: 2009Q4

REPORT INFORMATION
  Report Type: 
  Country: None (occurrence: None)
  Receive Date: 20091230
  Receipt Date: 20091218
  Transmission Date: 20100525
  Serious: Yes (Hospitalization)
  Sender: FDA-Public Use
  Company Number: ES-CELGENEUS-144-C5013-09121646

PATIENT
  Sex: Male
  Weight: 78 kg

DRUGS (12)
  1. CC-5013 [Suspect]
     Indication: MULTIPLE MYELOMA
     Route: 048
     Dates: start: 20091202
  2. CC-5013 [Suspect]
     Route: 048
     Dates: start: 20090610
  3. DEXAMETHASONE [Suspect]
     Indication: MULTIPLE MYELOMA
     Route: 065
     Dates: start: 20091202
  4. DEXAMETHASONE [Suspect]
     Route: 065
     Dates: start: 20090610
  5. ENOXAPARIN SODIUM [Concomitant]
     Indication: THROMBOSIS PROPHYLAXIS
     Route: 058
     Dates: start: 20090610
  6. OMEPRAZOLE [Concomitant]
     Indication: PROPHYLAXIS
     Route: 048
     Dates: start: 20090520
  7. SULPHAMETHOXAZOLE [Concomitant]
     Route: 048
     Dates: start: 20090610
  8. TRIMETHOPRIM [Concomitant]
     Route: 048
     Dates: start: 20090610
  9. METHYLPREDNISOLONE [Concomitant]
     Indication: BRONCHOSPASM
     Route: 051
     Dates: start: 20090612, end: 20090613
  10. OSELTAMIVIR [Concomitant]
     Route: 048
     Dates: start: 20090613, end: 20090615
  11. LEVOFLOXACIN [Concomitant]
     Indication: ANTIBIOTIC THERAPY
     Route: 048
     Dates: start: 20090613
  12. PREDNISONE [Concomitant]
     Indication: BRONCHOSPASM
     Route: 048
     Dates: start: 20090614, end: 20090615

REACTIONS (1)
  - RESPIRATORY SYNCYTIAL VIRUS INFECTION [None]
